FAERS Safety Report 8016003-4 (Version None)
Quarter: 2011Q4

REPORT INFORMATION
  Report Type: 
  Country: None (occurrence: None)
  Receive Date: 20111230
  Receipt Date: 20111230
  Transmission Date: 20120403
  Serious: Yes (Hospitalization)
  Sender: FDA-Public Use
  Company Number: None

PATIENT
  Age: 77 Year
  Sex: Female

DRUGS (3)
  1. CIMZIA [Suspect]
  2. NITROFURANTOIN [Concomitant]
     Route: 048
  3. METHOTREXATE [Concomitant]

REACTIONS (4)
  - WOUND INFECTION STAPHYLOCOCCAL [None]
  - RASH ERYTHEMATOUS [None]
  - ACUTE FEBRILE NEUTROPHILIC DERMATOSIS [None]
  - SUBCORNEAL PUSTULAR DERMATOSIS [None]
